FAERS Safety Report 4610619-0 (Version None)
Quarter: 2005Q1

REPORT INFORMATION
  Report Type: 
  Country: None (occurrence: None)
  Receive Date: 20050316
  Receipt Date: 20050302
  Transmission Date: 20050727
  Serious: Yes (Hospitalization)
  Sender: FDA-Public Use
  Company Number: 2005039865

PATIENT
  Sex: Female

DRUGS (1)
  1. BEN-GAY ULTRA (MENTHOL, CAMPHOR, METHYL SALICYLATE) [Suspect]
     Indication: NEUROPATHY
     Dosage: SEVERAL TIMES, QD, TOPICAL
     Route: 061
     Dates: end: 20050302

REACTIONS (3)
  - LABORATORY TEST ABNORMAL [None]
  - THROMBOSIS [None]
  - WHITE BLOOD CELL COUNT ABNORMAL [None]
